FAERS Safety Report 4605016-8 (Version None)
Quarter: 2005Q1

REPORT INFORMATION
  Report Type: 
  Country: None (occurrence: None)
  Receive Date: 20050311
  Receipt Date: 20050301
  Transmission Date: 20050727
  Serious: Yes (Other)
  Sender: FDA-Public Use
  Company Number: DE-JNJFOC-20050206429

PATIENT
  Sex: Female

DRUGS (2)
  1. RISPERDAL CONSTA [Suspect]
     Dosage: THERAPY DATES: SINCE 1 YEAR
     Route: 030
  2. RISPERDAL [Suspect]
     Dosage: 7.5 MG UP TO 12 MG  THERAPY DATES: SINCE ONE YEAR
     Route: 049

REACTIONS (3)
  - ANXIETY [None]
  - HYPERTENSION [None]
  - TREMOR [None]
